FAERS Safety Report 5206242-X (Version None)
Quarter: 2007Q1

REPORT INFORMATION
  Report Type: 
  Country: None (occurrence: None)
  Receive Date: 20070111
  Receipt Date: 20061229
  Transmission Date: 20070707
  Serious: Yes (Death)
  Sender: FDA-Public Use
  Company Number: US-SHR-US-2005-011905

PATIENT
  Age: 47 Year
  Sex: Male
  Weight: 64.1 kg

DRUGS (8)
  1. BETASERON [Suspect]
     Indication: SECONDARY PROGRESSIVE MULTIPLE SCLEROSIS
     Dosage: UNK, UNK
     Route: 058
     Dates: start: 19980914, end: 20030520
  2. TRILEPTAL [Concomitant]
     Dosage: 1200 MG/D, UNK
  3. AZATHIOPRINE [Concomitant]
     Dosage: 50 MG, UNK
  4. PROPRANOLOL [Concomitant]
     Dosage: 12 MG/D, UNK
  5. ARTANE [Concomitant]
     Dosage: 2 MG/D, 2X/DAY
  6. BACLOFEN [Concomitant]
     Dosage: 10 MG/D, 3X/DAY
  7. DOCUSATE SODIUM [Concomitant]
  8. IPRATROPIUM BROMIDE [Concomitant]
     Dosage: UNK, 3X/DAY

REACTIONS (2)
  - DEPRESSED LEVEL OF CONSCIOUSNESS [None]
  - PROGRESSIVE MULTIPLE SCLEROSIS [None]
